FAERS Safety Report 21689853 (Version 1)
Quarter: 2022Q4

REPORT INFORMATION
  Report Type: Spontaneous
  Country: US (occurrence: None)
  Receive Date: 20221205
  Receipt Date: 20221205
  Transmission Date: 20230113
  Serious: Yes (Death)
  Sender: FDA-Public Use
  Company Number: None

PATIENT
  Age: 68 Year
  Sex: Male

DRUGS (17)
  1. OPSUMIT [Suspect]
     Active Substance: MACITENTAN
     Indication: Pulmonary hypertension
     Dosage: 10MG QD ORAL?
     Route: 048
     Dates: start: 20180215, end: 20220912
  2. SILDENAFIL [Concomitant]
     Active Substance: SILDENAFIL
  3. Selexipeg [Concomitant]
  4. POTASSIUM [Concomitant]
     Active Substance: POTASSIUM
  5. ZOLPIDEM [Concomitant]
     Active Substance: ZOLPIDEM TARTRATE
  6. CLONAZEPAM [Concomitant]
     Active Substance: CLONAZEPAM
  7. ATORVASTATIN [Concomitant]
     Active Substance: ATORVASTATIN
  8. TORSEMIDE [Concomitant]
     Active Substance: TORSEMIDE
  9. METOLAZONE [Concomitant]
     Active Substance: METOLAZONE
  10. FLUOXETINE [Concomitant]
     Active Substance: FLUOXETINE HYDROCHLORIDE
  11. STIOLTO RESPIMAT [Concomitant]
     Active Substance: OLODATEROL HYDROCHLORIDE\TIOTROPIUM BROMIDE MONOHYDRATE
  12. FLONASE [Concomitant]
     Active Substance: FLUTICASONE PROPIONATE
  13. TAMSULOSIN [Concomitant]
     Active Substance: TAMSULOSIN
  14. VITAMIN D3 [Concomitant]
     Active Substance: CHOLECALCIFEROL
  15. ANORO ELLIPTA [Concomitant]
     Active Substance: UMECLIDINIUM BROMIDE\VILANTEROL TRIFENATATE
  16. Centrum Silver MVI [Concomitant]
  17. OMEGA-3 FATTY ACIDS [Concomitant]
     Active Substance: OMEGA-3 FATTY ACIDS

REACTIONS (1)
  - Death [None]

NARRATIVE: CASE EVENT DATE: 20220912
